FAERS Safety Report 8760850 (Version 2)
Quarter: 2012Q4

REPORT INFORMATION
  Report Type: 
  Country: US (occurrence: US)
  Receive Date: 20120830
  Receipt Date: 20121126
  Transmission Date: 20130627
  Serious: Yes (Death)
  Sender: FDA-Public Use
  Company Number: US-CELGENEUS-163-21880-12082953

PATIENT
  Age: 68 Year
  Sex: Female

DRUGS (22)
  1. REVLIMID [Suspect]
     Indication: B-CELL LYMPHOMA NOS
     Dosage: 25 Milligram
     Route: 048
     Dates: start: 201203
  2. REVLIMID [Suspect]
     Dosage: 25 Milligram
     Route: 048
     Dates: start: 20120809, end: 20120818
  3. ASPIRIN [Concomitant]
     Indication: DRUG USE FOR UNKNOWN INDICATION
     Dosage: 81 Milligram
     Route: 048
  4. CALTRATE [Concomitant]
     Indication: DRUG USE FOR UNKNOWN INDICATION
     Dosage: 1200 Milligram
     Route: 048
  5. ELAVIL [Concomitant]
     Indication: DRUG USE FOR UNKNOWN INDICATION
     Dosage: 25 Milligram
     Route: 048
  6. GLUCOPHAGE [Concomitant]
     Indication: DRUG USE FOR UNKNOWN INDICATION
     Dosage: 2000 Milligram
     Route: 048
  7. GLUCOTROL [Concomitant]
     Indication: DRUG USE FOR UNKNOWN INDICATION
     Dosage: 5 Milligram
     Route: 048
  8. HYZAAR [Concomitant]
     Indication: DRUG USE FOR UNKNOWN INDICATION
     Dosage: 100mg-12.5mg
     Route: 048
  9. KEPPRA [Concomitant]
     Indication: DRUG USE FOR UNKNOWN INDICATION
     Dosage: 500 Milligram
     Route: 048
  10. KETOTIFEN [Concomitant]
     Indication: DRUG USE FOR UNKNOWN INDICATION
     Dosage: 1 Drops
     Route: 047
  11. LIPITOR [Concomitant]
     Indication: DRUG USE FOR UNKNOWN INDICATION
     Dosage: 80 Milligram
     Route: 048
  12. NORVASC [Concomitant]
     Indication: DRUG USE FOR UNKNOWN INDICATION
     Dosage: 5 Milligram
     Route: 048
  13. NOVOLOG [Concomitant]
     Indication: DRUG USE FOR UNKNOWN INDICATION
     Dosage: 70/30
     Route: 058
  14. PREVACID [Concomitant]
     Indication: DRUG USE FOR UNKNOWN INDICATION
     Dosage: 241 Milligram
     Route: 048
  15. LISINOPRIL [Concomitant]
     Indication: DRUG USE FOR UNKNOWN INDICATION
     Dosage: 40 Milligram
     Route: 048
  16. NEURONTIN [Concomitant]
     Indication: DRUG USE FOR UNKNOWN INDICATION
     Dosage: 900 Milligram
     Route: 048
  17. RELAFEN [Concomitant]
     Indication: DRUG USE FOR UNKNOWN INDICATION
     Dosage: 1500 Milligram
     Route: 048
  18. SYMBICORT [Concomitant]
     Indication: DRUG USE FOR UNKNOWN INDICATION
     Dosage: 2 inhalation
     Route: 055
  19. SYNTHROID [Concomitant]
     Indication: DRUG USE FOR UNKNOWN INDICATION
     Dosage: 50 Microgram
     Route: 048
  20. SYSTANE [Concomitant]
     Indication: DRUG USE FOR UNKNOWN INDICATION
     Dosage: 1 Drops
     Route: 047
  21. XALATAN [Concomitant]
     Indication: DRUG USE FOR UNKNOWN INDICATION
     Dosage: 1 Drops
     Route: 047
  22. ZOLOFT [Concomitant]
     Indication: DRUG USE FOR UNKNOWN INDICATION
     Route: 048

REACTIONS (2)
  - Myocardial infarction [Fatal]
  - Aortic valve stenosis [Fatal]
